FAERS Safety Report 8099726-0 (Version None)
Quarter: 2012Q1

REPORT INFORMATION
  Report Type: 
  Country: None (occurrence: None)
  Receive Date: 20120126
  Receipt Date: 20120120
  Transmission Date: 20120608
  Serious: Yes (Other)
  Sender: FDA-Public Use
  Company Number: IND1-FR-2011-0010

PATIENT
  Age: 55 Year
  Sex: Male

DRUGS (5)
  1. INDOMETHACIN [Suspect]
     Indication: PSORIATIC ARTHROPATHY
     Dosage: 25 MG (25 MG, 1 IN 1 D), ORAL
     Route: 048
     Dates: start: 20070101
  2. REMICADE [Suspect]
     Indication: PSORIATIC ARTHROPATHY
     Dosage: 500 MG (6 MG/KG, 1X500MG INJECTION EVERY 5-6 WEEKS), INTRAVENOUS
     Route: 042
     Dates: start: 20050101
  3. METHOTREXATE SODIUM [Suspect]
     Indication: PSORIATIC ARTHROPATHY
     Dosage: 0.7143 MG (5 MG, 1 IN 1 WK), ORAL; 1.4286 MG (10 MG, 1 IN 1 3K)
     Route: 048
     Dates: start: 20070101, end: 20110101
  4. FOLIC ACID [Suspect]
     Indication: PSORIATIC ARTHROPATHY
     Dosage: 1 TABLET A WEEK, ORAL
     Route: 048
     Dates: start: 20070101
  5. ESOMEPRAZOLE MAGNESIUM [Suspect]
     Indication: PSORIATIC ARTHROPATHY
     Dosage: 20 MG (20 MG, 1 IN 1 D), ORAL
     Route: 048
     Dates: start: 20070101

REACTIONS (4)
  - HYPERPROTEINAEMIA [None]
  - HYPERGAMMAGLOBULINAEMIA [None]
  - PARAESTHESIA [None]
  - CHRONIC INFLAMMATORY DEMYELINATING POLYRADICULONEUROPATHY [None]
